FAERS Safety Report 15422573 (Version 1)
Quarter: 2018Q3

REPORT INFORMATION
  Report Type: Spontaneous
  Country: US (occurrence: US)
  Receive Date: 20180925
  Receipt Date: 20180925
  Transmission Date: 20181010
  Serious: No
  Sender: FDA-Public Use
  Company Number: US-BRISTOL-MYERS SQUIBB COMPANY-BMS-2018-087328

PATIENT
  Age: 34 Year
  Sex: Female
  Weight: 77.11 kg

DRUGS (4)
  1. CARAFATE [Concomitant]
     Active Substance: SUCRALFATE
     Indication: PRODUCT USED FOR UNKNOWN INDICATION
     Dosage: 1G, IT DEPENDS 2 O 3 TIMES A DAY
     Route: 065
  2. OMEPRAZOLE. [Concomitant]
     Active Substance: OMEPRAZOLE
     Indication: PRODUCT USED FOR UNKNOWN INDICATION
     Dosage: 20 MG, IN THE MORNING
     Route: 065
  3. SYNTHROID [Concomitant]
     Active Substance: LEVOTHYROXINE SODIUM
     Indication: PRODUCT USED FOR UNKNOWN INDICATION
     Dosage: 100 MCG DAILY ON THE MORNING
     Route: 065
  4. ORENCIA [Suspect]
     Active Substance: ABATACEPT
     Indication: RHEUMATOID ARTHRITIS
     Dosage: 125 MG, QWK
     Route: 065
     Dates: start: 20180918

REACTIONS (3)
  - Arthralgia [Not Recovered/Not Resolved]
  - Asthenia [Not Recovered/Not Resolved]
  - Injection site pain [Not Recovered/Not Resolved]

NARRATIVE: CASE EVENT DATE: 20180919
